FAERS Safety Report 8911207 (Version 1)
Quarter: 2012Q4

REPORT INFORMATION
  Report Type: 
  Country: US (occurrence: US)
  Receive Date: 20121116
  Receipt Date: 20121116
  Transmission Date: 20130627
  Serious: No
  Sender: FDA-Public Use
  Company Number: US-GLAXOSMITHKLINE-A0991125A

PATIENT
  Age: 69 Year
  Sex: Female

DRUGS (3)
  1. VOTRIENT [Suspect]
     Indication: LEIOMYOSARCOMA
     Dosage: 4TAB At night
     Route: 048
     Dates: start: 201207
  2. VITAMINS [Suspect]
  3. DILAUDID [Concomitant]

REACTIONS (3)
  - Hyperchlorhydria [Unknown]
  - Nausea [Unknown]
  - Diarrhoea [Unknown]
